FAERS Safety Report 7070100-9 (Version None)
Quarter: 2010Q4

REPORT INFORMATION
  Report Type: 
  Country: None (occurrence: None)
  Receive Date: 20101028
  Receipt Date: 20100908
  Transmission Date: 20110411
  Serious: Yes (Other)
  Sender: FDA-Public Use
  Company Number: US-WYE-H17395410

PATIENT
  Age: 13 Year
  Sex: Male
  Weight: 63.56 kg

DRUGS (1)
  1. ADVIL [Suspect]
     Indication: PAIN
     Dosage: 2 LIQUI-GELS 1 TIME
     Route: 048
     Dates: start: 20100601, end: 20100601

REACTIONS (1)
  - ANAPHYLACTIC REACTION [None]
